FAERS Safety Report 11155765 (Version 1)
Quarter: 2015Q2

REPORT INFORMATION
  Report Type: Spontaneous
  Country: US (occurrence: US)
  Receive Date: 20150602
  Receipt Date: 20150602
  Transmission Date: 20150821
  Serious: Yes (Other)
  Sender: FDA-Public Use
  Company Number: US-BAYER-2015-274901

PATIENT
  Age: 33 Year
  Sex: Female

DRUGS (3)
  1. AVELOX [Suspect]
     Active Substance: MOXIFLOXACIN HYDROCHLORIDE
     Indication: SINUSITIS
     Dosage: DAILY DOSE 500 MG
     Dates: start: 200509
  2. FLAGYL [Concomitant]
     Active Substance: METRONIDAZOLE\METRONIDAZOLE HYDROCHLORIDE
     Indication: DIVERTICULITIS
     Dosage: DAILY DOSE 500 MG
     Dates: start: 201101
  3. CIPROFLOXACIN. [Suspect]
     Active Substance: CIPROFLOXACIN
     Indication: DIVERTICULITIS
     Dosage: 500 MG, BID
     Dates: start: 201101

REACTIONS (24)
  - Arthralgia [None]
  - Feeling abnormal [None]
  - Nausea [None]
  - Panic attack [None]
  - Hyperkalaemia [None]
  - Hypercalcaemia [None]
  - Depression [None]
  - Lymphadenopathy [None]
  - Hyperhidrosis [None]
  - Toxicity to various agents [None]
  - Fibromyalgia [None]
  - Pain in extremity [None]
  - Neck pain [None]
  - Musculoskeletal pain [None]
  - Toxicity to various agents [None]
  - Chest pain [None]
  - Tachycardia [None]
  - Dyspnoea [None]
  - Tremor [None]
  - Insomnia [None]
  - Dizziness [None]
  - Vision blurred [None]
  - Phonophobia [None]
  - Dehydroepiandrosterone increased [None]

NARRATIVE: CASE EVENT DATE: 200509
